FAERS Safety Report 9513174 (Version 2)
Quarter: 2013Q4

REPORT INFORMATION
  Report Type: Spontaneous
  Country: JP (occurrence: JP)
  Receive Date: 20130910
  Receipt Date: 20131002
  Transmission Date: 20140711
  Serious: Yes (Other)
  Sender: FDA-Public Use
  Company Number: JP-PFIZER INC-2013259874

PATIENT
  Age: 80 Year
  Sex: Female

DRUGS (6)
  1. AMLODIPINE BESILATE [Suspect]
     Dosage: UNK
  2. PREMINENT [Concomitant]
     Dosage: UNK
  3. ARTIST [Concomitant]
     Dosage: UNK
  4. LANSOPRAZOLE [Concomitant]
     Dosage: UNK
  5. HYPEN [Concomitant]
     Dosage: UNK
  6. METHYCOBAL [Concomitant]
     Dosage: UNK

REACTIONS (1)
  - Urinary retention [Unknown]
